FAERS Safety Report 25670897 (Version 2)
Quarter: 2025Q3

REPORT INFORMATION
  Report Type: Spontaneous
  Country: US (occurrence: US)
  Receive Date: 20250812
  Receipt Date: 20250915
  Transmission Date: 20251020
  Serious: Yes (Hospitalization)
  Sender: DAIICHI
  Company Number: US-DSJP-DS-2025-157558-US

PATIENT
  Sex: Female

DRUGS (1)
  1. VANFLYTA [Suspect]
     Active Substance: QUIZARTINIB DIHYDROCHLORIDE
     Indication: Acute myeloid leukaemia
     Dosage: 35.4 MG (17.7MG X 2 TABLETS), QD (DAILY ON DAYS 8-21 OF A 28 DAY CYCLE)
     Route: 048
     Dates: start: 20250703

REACTIONS (2)
  - Pyrexia [Recovering/Resolving]
  - Rash [Not Recovered/Not Resolved]
